FAERS Safety Report 24984822 (Version 5)
Quarter: 2025Q4

REPORT INFORMATION
  Report Type: Spontaneous
  Country: EU (occurrence: EU)
  Receive Date: 20250219
  Receipt Date: 20251120
  Transmission Date: 20260118
  Serious: Yes (Life-Threatening, Hospitalization, Other)
  Sender: AUROBINDO
  Company Number: EU-STADA-01347480

PATIENT
  Age: 48 Year
  Sex: Male

DRUGS (4)
  1. LENALIDOMIDE [Suspect]
     Active Substance: LENALIDOMIDE
     Indication: Plasma cell myeloma
     Dosage: UNK
     Route: 065
  2. DARZALEX [Suspect]
     Active Substance: DARATUMUMAB
     Indication: Plasma cell myeloma
     Dosage: UNK
     Route: 065
  3. DEXAMETHASONE [Suspect]
     Active Substance: DEXAMETHASONE
     Indication: Plasma cell myeloma
     Dosage: UNK
     Route: 065
  4. DARATUMUMAB [Concomitant]
     Active Substance: DARATUMUMAB
     Indication: Plasma cell myeloma
     Dosage: UNK
     Route: 065

REACTIONS (7)
  - Ischaemic stroke [Recovered/Resolved]
  - Drug interaction [Unknown]
  - Parietal lobe stroke [Recovered/Resolved]
  - Moyamoya disease [Unknown]
  - Autoimmune vasculitis [Unknown]
  - Aphasia [Recovered/Resolved]
  - Stenosis [Unknown]

NARRATIVE: CASE EVENT DATE: 20240706
